FAERS Safety Report 20785296 (Version 1)
Quarter: 2022Q2

REPORT INFORMATION
  Report Type: Spontaneous
  Country: US (occurrence: None)
  Receive Date: 20220504
  Receipt Date: 20220504
  Transmission Date: 20220720
  Serious: No
  Sender: FDA-Public Use
  Company Number: None

PATIENT
  Sex: Female

DRUGS (1)
  1. LENALIDOMIDE [Suspect]
     Active Substance: LENALIDOMIDE
     Indication: Large intestine benign neoplasm
     Route: 048
     Dates: start: 20220322

REACTIONS (3)
  - Dizziness [None]
  - Product substitution issue [None]
  - Condition aggravated [None]
